FAERS Safety Report 22144848 (Version 1)
Quarter: 2023Q1

REPORT INFORMATION
  Report Type: Spontaneous
  Country: US (occurrence: US)
  Receive Date: 20230328
  Receipt Date: 20230328
  Transmission Date: 20230418
  Serious: No
  Sender: FDA-Public Use
  Company Number: US-SUN PHARMACEUTICAL INDUSTRIES LTD-2022R1-349464

PATIENT
  Sex: Female

DRUGS (1)
  1. BUPRENORPHINE [Suspect]
     Active Substance: BUPRENORPHINE
     Indication: Product used for unknown indication
     Dosage: 8 MILLIGRAM, TID
     Route: 060

REACTIONS (8)
  - Tongue discomfort [Unknown]
  - Withdrawal syndrome [Unknown]
  - Gastrointestinal pain [Unknown]
  - Malaise [Unknown]
  - Dyspepsia [Unknown]
  - Headache [Unknown]
  - Feeling abnormal [Unknown]
  - Muscle spasms [Unknown]
